FAERS Safety Report 18359292 (Version 1)
Quarter: 2020Q4

REPORT INFORMATION
  Report Type: Spontaneous
  Country: US (occurrence: US)
  Receive Date: 20201007
  Receipt Date: 20201007
  Transmission Date: 20210114
  Serious: No
  Sender: FDA-Public Use
  Company Number: None

PATIENT
  Age: 64 Year
  Sex: Female
  Weight: 45.36 kg

DRUGS (13)
  1. TEMOZOLOMIDE. [Suspect]
     Active Substance: TEMOZOLOMIDE
     Indication: CARCINOID SYNDROME
     Route: 048
     Dates: start: 20200916
  2. CREON 3000-9500 UNIT [Concomitant]
  3. HYDROMORPHONE 2MG [Concomitant]
  4. COLACE [Concomitant]
     Active Substance: DOCUSATE SODIUM
  5. MARINOL 2.5MG [Concomitant]
  6. ONDANSETRON 8MG [Concomitant]
     Active Substance: ONDANSETRON
  7. SOMATULINE DEPOT 150MG [Concomitant]
  8. SENOKOT 8.6 [Concomitant]
  9. CAPECITABINE 500MG [Concomitant]
     Active Substance: CAPECITABINE
  10. TEMOZOLOMIDE. [Suspect]
     Active Substance: TEMOZOLOMIDE
     Indication: CARCINOID SYNDROME
     Route: 048
     Dates: start: 20200916
  11. LORAZEPAM 0.5MG [Concomitant]
     Active Substance: LORAZEPAM
  12. MIRALAX 17 [Concomitant]
  13. REGLAN 5MG [Concomitant]

REACTIONS (2)
  - Pyrexia [None]
  - Fatigue [None]

NARRATIVE: CASE EVENT DATE: 20201005
